FAERS Safety Report 5445124-5 (Version None)
Quarter: 2007Q3

REPORT INFORMATION
  Report Type: 
  Country: None (occurrence: None)
  Receive Date: 20070730
  Receipt Date: 20070328
  Transmission Date: 20080115
  Serious: Yes (Other)
  Sender: FDA-Public Use
  Company Number: 239112

PATIENT
  Sex: Female

DRUGS (6)
  1. RITUXAN [Suspect]
     Indication: AUTOIMMUNE DISORDER
     Dosage: 375 MG/M2, 1/WEEK, INTRAVENOUS
     Route: 042
  2. IVIG (GLOBULIN, IMMUNE) [Concomitant]
  3. MYCOPHENOLATE MOFETIL [Concomitant]
  4. PREDNISONE TAB [Concomitant]
  5. ACETAMINOPHEN [Concomitant]
  6. DIPHENHDRAMINE (DIPHENHYDRAMINE NOS) [Concomitant]

REACTIONS (2)
  - KERATITIS HERPETIC [None]
  - PNEUMONIA [None]
